FAERS Safety Report 6683562-3 (Version None)
Quarter: 2010Q2

REPORT INFORMATION
  Report Type: 
  Country: None (occurrence: None)
  Receive Date: 20100413
  Receipt Date: 20100329
  Transmission Date: 20101027
  Serious: Yes (Other)
  Sender: FDA-Public Use
  Company Number: AUR-APL-2010-00075

PATIENT
  Age: 23 Year
  Sex: Female
  Weight: 88 kg

DRUGS (1)
  1. SERTRALINE HCL [Suspect]
     Dosage: 50MG, DAILY, ORAL
     Route: 048
     Dates: start: 20080401, end: 20080501

REACTIONS (2)
  - CONDITION AGGRAVATED [None]
  - PSORIASIS [None]
